FAERS Safety Report 9204297 (Version 1)
Quarter: 2013Q1

REPORT INFORMATION
  Report Type: Spontaneous
  Country: US (occurrence: None)
  Receive Date: 20120709
  Receipt Date: 20120709
  Transmission Date: 20140127
  Serious: No
  Sender: FDA-Public Use
  Company Number: 2012HGS-003385

PATIENT
  Age: 49 Year
  Sex: Female

DRUGS (4)
  1. BENLYSTA [Suspect]
     Dosage: 1 IN 28 D
     Route: 041
     Dates: start: 20120301
  2. PLAQUENIL (HYDROCHLOROQUINE PHOSPHATE) (HYDROCHLOROQUINE PHOSPHATE) [Concomitant]
  3. MOBIC (MELOXICAM) (MELOXICAM) [Concomitant]
  4. PREDNISONE (PREDNISONE) (PREDNISONE) [Concomitant]

REACTIONS (2)
  - Dizziness [None]
  - Ear discomfort [None]
